FAERS Safety Report 10270624 (Version 3)
Quarter: 2014Q3

REPORT INFORMATION
  Report Type: Report from Study
  Country: US (occurrence: US)
  Receive Date: 20140701
  Receipt Date: 20140915
  Transmission Date: 20150326
  Serious: Yes (Other)
  Sender: FDA-Public Use
  Company Number: US-PURDUE-USA-2014-0115196

PATIENT
  Age: 50 Year
  Sex: Female

DRUGS (3)
  1. OXYCONTIN [Suspect]
     Active Substance: OXYCODONE HYDROCHLORIDE
     Indication: BRAIN CANCER METASTATIC
     Dosage: 20 MG, Q12H
     Route: 048
     Dates: start: 20140630
  2. OXYCONTIN [Suspect]
     Active Substance: OXYCODONE HYDROCHLORIDE
     Indication: NEOPLASM MALIGNANT
     Dosage: 20 UNK, UNK
     Route: 048
     Dates: start: 2013
  3. OXYCONTIN [Suspect]
     Active Substance: OXYCODONE HYDROCHLORIDE
     Dosage: 20 MG, UNK
     Route: 048
     Dates: start: 20140513

REACTIONS (9)
  - Muscular weakness [Unknown]
  - Feeling abnormal [Unknown]
  - Asthenia [Unknown]
  - Somnolence [Unknown]
  - Skin cancer metastatic [Unknown]
  - Dizziness [Unknown]
  - Depression [Unknown]
  - Apathy [Unknown]
  - Diabetes mellitus [Unknown]

NARRATIVE: CASE EVENT DATE: 20140721
